FAERS Safety Report 8941544 (Version 3)
Quarter: 2014Q1

REPORT INFORMATION
  Report Type: Spontaneous
  Country: US (occurrence: US)
  Receive Date: 20121203
  Receipt Date: 20140220
  Transmission Date: 20141002
  Serious: Yes (Hospitalization, Disabling, Other)
  Sender: FDA-Public Use
  Company Number: US-009507513-1211USA012127

PATIENT
  Sex: Male

DRUGS (3)
  1. PROPECIA [Suspect]
     Indication: ANDROGENETIC ALOPECIA
     Dosage: 1 MG, UNK
     Route: 048
     Dates: start: 20020912, end: 20070126
  2. PROPECIA [Suspect]
     Dosage: UNK, UNK
     Route: 048
     Dates: start: 2004, end: 2007
  3. METHYLPREDNISOLONE [Concomitant]
     Indication: HYPERSENSITIVITY
     Dosage: UNK
     Dates: start: 20070226, end: 200703

REACTIONS (13)
  - Myasthenia gravis [Not Recovered/Not Resolved]
  - Hospitalisation [Unknown]
  - Cognitive disorder [Not Recovered/Not Resolved]
  - Sensory loss [Unknown]
  - Bacterial infection [Unknown]
  - Anxiety [Unknown]
  - Fungal infection [Unknown]
  - Hypothyroidism [Unknown]
  - Libido decreased [Unknown]
  - Depression [Unknown]
  - Erectile dysfunction [Unknown]
  - Breast enlargement [Unknown]
  - Sexual dysfunction [Not Recovered/Not Resolved]
